FAERS Safety Report 5848243-4 (Version None)
Quarter: 2008Q3

REPORT INFORMATION
  Report Type: 
  Country: None (occurrence: None)
  Receive Date: 20080818
  Receipt Date: 20080811
  Transmission Date: 20090109
  Serious: Yes (Hospitalization)
  Sender: FDA-Public Use
  Company Number: US-BRISTOL-MYERS SQUIBB COMPANY-14296735

PATIENT
  Age: 57 Year
  Sex: Male
  Weight: 72 kg

DRUGS (10)
  1. PACLITAXEL [Suspect]
     Indication: HEAD AND NECK CANCER
  2. CARBOPLATIN [Suspect]
     Indication: HEAD AND NECK CANCER
  3. PANITUMUMAB [Suspect]
     Indication: HEAD AND NECK CANCER
     Dosage: THERAPY STARTED ON: 06-NOV-2007
     Route: 042
     Dates: start: 20071218, end: 20071218
  4. RADIATION THERAPY [Suspect]
     Indication: HEAD AND NECK CANCER
  5. LORAZEPAM [Concomitant]
  6. DOCUSATE SODIUM [Concomitant]
  7. OXYCODONE HCL [Concomitant]
  8. OMEPRAZOLE [Concomitant]
  9. METOCLOPRAMIDE [Concomitant]
  10. GUAIFENESIN [Concomitant]

REACTIONS (2)
  - PLEURAL EFFUSION [None]
  - PNEUMONIA PNEUMOCOCCAL [None]
